FAERS Safety Report 13878302 (Version 1)
Quarter: 2017Q3

REPORT INFORMATION
  Report Type: Spontaneous
  Country: US (occurrence: US)
  Receive Date: 20170817
  Receipt Date: 20170817
  Transmission Date: 20171127
  Serious: Yes (Other)
  Sender: FDA-Public Use
  Company Number: US-ROCHE-1422709

PATIENT
  Age: 58 Year
  Sex: Male

DRUGS (9)
  1. RIBAVIRIN. [Suspect]
     Active Substance: RIBAVIRIN
     Indication: HEPATITIS C
     Route: 048
     Dates: start: 20140324
  2. RIBAVIRIN. [Suspect]
     Active Substance: RIBAVIRIN
     Route: 048
     Dates: end: 20140616
  3. WARFARIN [Concomitant]
     Active Substance: WARFARIN
     Route: 065
     Dates: start: 20130816
  4. FLECAINIDE [Concomitant]
     Active Substance: FLECAINIDE
     Route: 065
     Dates: start: 20140411
  5. PEG-INTERFERON ALFA 2A [Suspect]
     Active Substance: PEGINTERFERON ALFA-2A
     Indication: HEPATITIS C
     Route: 058
     Dates: start: 20140324, end: 20140616
  6. LOVENOX [Concomitant]
     Active Substance: ENOXAPARIN SODIUM
     Dosage: TO RECEIVE IT FOR SIX DAYS.
     Route: 065
     Dates: start: 20140411
  7. METFORMIN [Concomitant]
     Active Substance: METFORMIN HYDROCHLORIDE
     Route: 065
     Dates: start: 201208
  8. SOVALDI [Suspect]
     Active Substance: SOFOSBUVIR
     Indication: HEPATITIS C
     Route: 048
     Dates: start: 20140324, end: 20140616
  9. FLECAINIDE [Concomitant]
     Active Substance: FLECAINIDE
     Route: 065
     Dates: start: 20130816, end: 20140411

REACTIONS (4)
  - Atrial fibrillation [Recovered/Resolved]
  - Anaemia [Unknown]
  - Fatigue [Unknown]
  - Rash [Unknown]

NARRATIVE: CASE EVENT DATE: 20140407
